FAERS Safety Report 20590566 (Version 2)
Quarter: 2022Q1

REPORT INFORMATION
  Report Type: Report from Study
  Country: KR (occurrence: KR)
  Receive Date: 20220314
  Receipt Date: 20220317
  Transmission Date: 20220423
  Serious: Yes (Hospitalization)
  Sender: FDA-Public Use
  Company Number: KR-TAKEDA-2022TUS016431

PATIENT
  Age: 81 Year
  Sex: Female

DRUGS (9)
  1. BRIGATINIB [Suspect]
     Active Substance: BRIGATINIB
     Indication: Product used for unknown indication
     Dosage: 90 MILLIGRAM, QD
     Route: 065
     Dates: start: 20200827, end: 20200902
  2. BRIGATINIB [Suspect]
     Active Substance: BRIGATINIB
     Dosage: 180 MILLIGRAM
     Route: 065
     Dates: start: 20200903, end: 20210814
  3. BISOPROLOL FUMARATE [Concomitant]
     Active Substance: BISOPROLOL FUMARATE
     Indication: Cardiomegaly
     Dosage: 2.5 MILLIGRAM
     Route: 048
     Dates: start: 20210126, end: 20210814
  4. BUPRENORPHINE [Concomitant]
     Active Substance: BUPRENORPHINE
     Indication: Lung neoplasm malignant
     Dosage: 35 MICROGRAM, Q1HR
     Route: 062
     Dates: start: 20210420, end: 20210606
  5. Warfarin daewha [Concomitant]
     Indication: Cardiomegaly
     Dosage: 2 MILLIGRAM
     Route: 048
     Dates: start: 20210423, end: 20210511
  6. DIGOXIN [Concomitant]
     Active Substance: DIGOXIN
     Indication: Cardiomegaly
     Dosage: UNK
     Route: 048
     Dates: start: 20210423, end: 20210814
  7. NIFERON [Concomitant]
     Indication: Hypertension
     Dosage: UNK
     Route: 048
     Dates: start: 20210423, end: 20210814
  8. GASTER [Concomitant]
     Active Substance: FAMOTIDINE
     Indication: Chronic gastritis
     Dosage: 20 MILLIGRAM
     Route: 048
     Dates: start: 20210423, end: 20210814
  9. DIOVAN [Concomitant]
     Active Substance: VALSARTAN
     Indication: Hypertension
     Dosage: 40 MILLIGRAM
     Route: 048
     Dates: start: 20210507, end: 20210511

REACTIONS (1)
  - Asthenia [Recovered/Resolved]

NARRATIVE: CASE EVENT DATE: 20210420
